FAERS Safety Report 9831993 (Version 27)
Quarter: 2016Q1

REPORT INFORMATION
  Report Type: Report from Study
  Country: CA (occurrence: CA)
  Receive Date: 20140121
  Receipt Date: 20160119
  Transmission Date: 20160526
  Serious: Yes (Hospitalization, Other)
  Sender: FDA-Public Use
  Company Number: PHHY2013CA153940

PATIENT
  Age: 70 Year
  Sex: Male

DRUGS (2)
  1. ZOMETA [Suspect]
     Active Substance: ZOLEDRONIC ACID
     Indication: PROSTATE CANCER
     Dosage: 4 MG, ONCE A MONTH
     Route: 042
     Dates: start: 20131228
  2. FLOMAX [Suspect]
     Active Substance: TAMSULOSIN HYDROCHLORIDE
     Indication: PRODUCT USED FOR UNKNOWN INDICATION
     Route: 065

REACTIONS (25)
  - Fluid intake reduced [Not Recovered/Not Resolved]
  - Infection [Unknown]
  - General physical health deterioration [Unknown]
  - Needle issue [Unknown]
  - Upper limb fracture [Unknown]
  - Fall [Recovering/Resolving]
  - Heart rate increased [Unknown]
  - Localised infection [Unknown]
  - Drug ineffective [Unknown]
  - Fall [Recovered/Resolved]
  - Respiratory rate increased [Unknown]
  - Syncope [Unknown]
  - Hiatus hernia [Unknown]
  - Rib fracture [Unknown]
  - Contusion [Recovering/Resolving]
  - Dizziness [Not Recovered/Not Resolved]
  - Dizziness [Recovered/Resolved]
  - Hypertension [Unknown]
  - Loss of consciousness [Recovered/Resolved]
  - Bone disorder [Unknown]
  - Hand fracture [Recovered/Resolved]
  - Weight decreased [Unknown]
  - Excoriation [Recovering/Resolving]
  - Decreased appetite [Unknown]
  - Arthralgia [Unknown]

NARRATIVE: CASE EVENT DATE: 20131228
